FAERS Safety Report 9786036 (Version 2)
Quarter: 2019Q4

REPORT INFORMATION
  Report Type: Spontaneous
  Country: US (occurrence: US)
  Receive Date: 20131227
  Receipt Date: 20191219
  Transmission Date: 20200122
  Serious: Yes (Hospitalization, Other)
  Sender: FDA-Public Use
  Company Number: US-UCBSA-106596

PATIENT
  Age: 23 Year
  Sex: Male

DRUGS (1)
  1. CIMZIA [Suspect]
     Active Substance: CERTOLIZUMAB PEGOL
     Dosage: STRENGTH: 200 MG KIT
     Route: 058
     Dates: start: 20120408, end: 20131118

REACTIONS (2)
  - Subcutaneous abscess [Unknown]
  - Infection [Unknown]

NARRATIVE: CASE EVENT DATE: 2013
